FAERS Safety Report 7645402-5 (Version None)
Quarter: 2011Q3

REPORT INFORMATION
  Report Type: 
  Country: None (occurrence: None)
  Receive Date: 20110729
  Receipt Date: 20110719
  Transmission Date: 20111222
  Serious: Yes (Other)
  Sender: FDA-Public Use
  Company Number: US-BAYER-201033729NA

PATIENT
  Age: 29 Year
  Sex: Female
  Weight: 47.619 kg

DRUGS (15)
  1. METHYLDOPA [Concomitant]
  2. PROCHLORPERAZINE MALEATE [Concomitant]
  3. AEROCHAMBER Z-STAT [Concomitant]
  4. FLUCONAZOLE [Concomitant]
  5. MEGESTROL ACETATE [Concomitant]
     Dosage: 40 MG, UNK
     Route: 048
  6. YASMIN [Suspect]
     Indication: ORAL CONTRACEPTION
     Dosage: UNK UNK, UNK
     Route: 048
     Dates: start: 20041102, end: 20090101
  7. CLINDAMYCIN [Concomitant]
  8. PROZAC [Concomitant]
     Dosage: 20 MG, QD
     Dates: start: 20080820
  9. PEPCID [Concomitant]
     Dosage: 20 MG, QD
  10. CIPROFLOXACIN [Concomitant]
     Dosage: UNK
     Dates: start: 20080801
  11. BENZONATATE [Concomitant]
     Route: 048
  12. QVAR 40 [Concomitant]
     Dosage: 2 PUFF(S), UNK
  13. CEPHALEXIN [Concomitant]
     Dosage: UNK
     Dates: start: 20080801
  14. NOXAFIL [Concomitant]
     Dosage: UNK
     Dates: start: 20080701, end: 20100701
  15. CEPHALEXIN [Concomitant]
     Dosage: UNK
     Dates: start: 20080501

REACTIONS (8)
  - PANCREATITIS [None]
  - GASTROINTESTINAL DISORDER [None]
  - GALLBLADDER DISORDER [None]
  - ABDOMINAL PAIN UPPER [None]
  - CHOLECYSTITIS ACUTE [None]
  - CHOLELITHIASIS [None]
  - NAUSEA [None]
  - DYSPEPSIA [None]
